FAERS Safety Report 8985943 (Version 1)
Quarter: 2012Q4

REPORT INFORMATION
  Report Type: 
  Country: US (occurrence: US)
  Receive Date: 20121226
  Receipt Date: 20121226
  Transmission Date: 20130627
  Serious: Yes (Other)
  Sender: FDA-Public Use
  Company Number: US-JNJFOC-20121208002

PATIENT
  Sex: Female

DRUGS (14)
  1. DOXORUBICIN [Suspect]
     Indication: BREAST CANCER
     Dosage: dose-dense chemotherapy
     Route: 042
  2. DOXORUBICIN [Suspect]
     Indication: BREAST CANCER
     Dosage: conventional chemotherapy
     Route: 042
  3. CYCLOPHOSPHAMIDE [Suspect]
     Indication: BREAST CANCER
     Dosage: dose-dense chemotherapy
     Route: 065
  4. CYCLOPHOSPHAMIDE [Suspect]
     Indication: BREAST CANCER
     Dosage: conventional chemotherapy
     Route: 065
  5. 5-FLUOROURACIL [Suspect]
     Indication: BREAST CANCER
     Dosage: dose-dense chemotherapy
     Route: 065
  6. 5-FLUOROURACIL [Suspect]
     Indication: BREAST CANCER
     Dosage: conventional chemotherapy
     Route: 065
  7. PACLITAXEL [Suspect]
     Indication: BREAST CANCER
     Dosage: conventional chemotherapy
     Route: 065
  8. PACLITAXEL [Suspect]
     Indication: BREAST CANCER
     Dosage: dose-dense chemotherapy
     Route: 065
  9. DOCETAXEL [Suspect]
     Indication: BREAST CANCER
     Dosage: 75-100 mg/m2, dose-dense chemotherapy
     Route: 065
  10. DOCETAXEL [Suspect]
     Indication: BREAST CANCER
     Dosage: 75-100 mg/m2, conventional chemotherapy
     Route: 065
  11. DACTINOMYCIN [Suspect]
     Indication: BREAST CANCER
     Dosage: conventional chemotherapy
     Route: 065
  12. DACTINOMYCIN [Suspect]
     Indication: BREAST CANCER
     Dosage: dose-dense chemotherapy
     Route: 065
  13. PEGFILGRASTIM [Suspect]
     Indication: BREAST CANCER
     Route: 065
  14. FILGRASTIM [Suspect]
     Indication: BREAST CANCER
     Route: 065

REACTIONS (5)
  - Premature labour [Recovered/Resolved]
  - Premature rupture of membranes [Recovered/Resolved]
  - Neutropenia [Unknown]
  - Breast cancer recurrent [Unknown]
  - Exposure during pregnancy [Recovered/Resolved]
